FAERS Safety Report 14271487 (Version 1)
Quarter: 2017Q4

REPORT INFORMATION
  Report Type: Spontaneous
  Country: CH (occurrence: CH)
  Receive Date: 20171211
  Receipt Date: 20171211
  Transmission Date: 20180321
  Serious: Yes (Other)
  Sender: FDA-Public Use
  Company Number: CH-ELI_LILLY_AND_COMPANY-CH201712000178

PATIENT
  Age: 0 Day
  Sex: Female
  Weight: 3.3 kg

DRUGS (12)
  1. HUMALOG [Suspect]
     Active Substance: INSULIN LISPRO
     Indication: DIABETES MELLITUS
     Route: 064
     Dates: start: 2013
  2. HUMALOG [Suspect]
     Active Substance: INSULIN LISPRO
     Indication: DIABETES MELLITUS
     Route: 064
     Dates: start: 2013
  3. TRANDATE [Suspect]
     Active Substance: LABETALOL HYDROCHLORIDE
     Indication: HYPERTENSION
     Dosage: 100 MG, BID
     Route: 064
     Dates: start: 20170417
  4. TRANDATE [Suspect]
     Active Substance: LABETALOL HYDROCHLORIDE
     Indication: HYPERTENSION
     Dosage: 100 MG, BID
     Route: 064
     Dates: start: 20170417
  5. METFORMIN [Suspect]
     Active Substance: METFORMIN HYDROCHLORIDE
     Indication: DIABETES MELLITUS
     Dosage: UNK UNK, UNKNOWN
     Route: 064
     Dates: start: 2013, end: 20170417
  6. COAPROVEL [Suspect]
     Active Substance: HYDROCHLOROTHIAZIDE\IRBESARTAN
     Indication: HYPERTENSION
     Route: 064
     Dates: start: 2016, end: 20170417
  7. TRESIBA [Suspect]
     Active Substance: INSULIN DEGLUDEC
     Dosage: UNK, BID
     Route: 064
  8. COAPROVEL [Suspect]
     Active Substance: HYDROCHLOROTHIAZIDE\IRBESARTAN
     Indication: HYPERTENSION
     Route: 064
     Dates: start: 2016, end: 20170417
  9. TRESIBA [Suspect]
     Active Substance: INSULIN DEGLUDEC
     Dosage: UNK, BID
     Route: 064
  10. TRESIBA [Suspect]
     Active Substance: INSULIN DEGLUDEC
     Indication: DIABETES MELLITUS
     Dosage: 24 IU, DAILY
     Route: 064
     Dates: start: 2014
  11. TRESIBA [Suspect]
     Active Substance: INSULIN DEGLUDEC
     Indication: DIABETES MELLITUS
     Dosage: 24 IU, DAILY
     Route: 064
     Dates: start: 2014
  12. METFORMIN [Suspect]
     Active Substance: METFORMIN HYDROCHLORIDE
     Indication: DIABETES MELLITUS
     Dosage: UNK UNK, UNKNOWN
     Route: 064
     Dates: start: 2013, end: 20170417

REACTIONS (3)
  - Foetal monitoring abnormal [Unknown]
  - Exposure during pregnancy [Recovered/Resolved]
  - Hypoglycaemia neonatal [Recovered/Resolved]

NARRATIVE: CASE EVENT DATE: 20170920
